FAERS Safety Report 11318659 (Version 1)
Quarter: 2015Q3

REPORT INFORMATION
  Report Type: Spontaneous
  Country: GB (occurrence: GB)
  Receive Date: 20150729
  Receipt Date: 20150729
  Transmission Date: 20151125
  Serious: Yes (Disabling)
  Sender: FDA-Public Use
  Company Number: GB-DRREDDYS-GER/UKI/15/0049648

PATIENT
  Age: 46 Year
  Sex: Female
  Weight: 69.85 kg

DRUGS (1)
  1. FLUOXETINE [Suspect]
     Active Substance: FLUOXETINE\FLUOXETINE HYDROCHLORIDE
     Indication: OBSESSIVE-COMPULSIVE DISORDER
     Route: 048
     Dates: start: 1995, end: 2014

REACTIONS (4)
  - Depression [Not Recovered/Not Resolved]
  - Tinnitus [Not Recovered/Not Resolved]
  - Vertigo [Unknown]
  - Deafness [Not Recovered/Not Resolved]

NARRATIVE: CASE EVENT DATE: 1999
